FAERS Safety Report 6370463-3 (Version None)
Quarter: 2009Q3

REPORT INFORMATION
  Report Type: 
  Country: None (occurrence: None)
  Receive Date: 20090923
  Receipt Date: 20090910
  Transmission Date: 20100115
  Serious: Yes (Other)
  Sender: FDA-Public Use
  Company Number: CA-PFIZER INC-2009267737

PATIENT
  Age: 88 Year

DRUGS (4)
  1. LINEZOLID [Suspect]
     Indication: HYPERTHERMIA
     Dosage: UNK
  2. LINEZOLID [Suspect]
     Dosage: 600 MG, 2X/DAY
  3. VANCOMYCIN [Concomitant]
     Route: 042
  4. RIFAMPICIN [Concomitant]

REACTIONS (2)
  - DRUG RASH WITH EOSINOPHILIA AND SYSTEMIC SYMPTOMS [None]
  - TUBULOINTERSTITIAL NEPHRITIS [None]
